FAERS Safety Report 18024745 (Version 1)
Quarter: 2020Q3

REPORT INFORMATION
  Report Type: Spontaneous
  Country: US (occurrence: US)
  Receive Date: 20200715
  Receipt Date: 20200715
  Transmission Date: 20201103
  Serious: Yes (Hospitalization)
  Sender: FDA-Public Use
  Company Number: None

PATIENT
  Age: 70 Year
  Sex: Female

DRUGS (4)
  1. VERZENIO [Suspect]
     Active Substance: ABEMACICLIB
     Indication: BREAST CANCER
     Route: 048
     Dates: start: 20191127
  2. TYLENOL ES 500MG [Concomitant]
     Dates: start: 20191125
  3. MULTIVITAMIN/MINERAL [Concomitant]
     Dates: start: 20191125
  4. GREEN TEA TABLETS [Concomitant]
     Dates: start: 20191125

REACTIONS (3)
  - Pneumonia [None]
  - Fatigue [None]
  - Pulmonary oedema [None]

NARRATIVE: CASE EVENT DATE: 20200707
